FAERS Safety Report 4273695-3 (Version None)
Quarter: 2004Q1

REPORT INFORMATION
  Report Type: 
  Country: None (occurrence: None)
  Receive Date: 20040119
  Receipt Date: 20031218
  Transmission Date: 20041129
  Serious: Yes (Life-Threatening)
  Sender: FDA-Public Use
  Company Number: FR-ROCHE-354306

PATIENT
  Age: 55 Year
  Sex: Male

DRUGS (4)
  1. LOXEN [Suspect]
     Indication: HYPERTENSION
     Route: 048
     Dates: start: 20030721
  2. ADVIL [Suspect]
     Route: 048
  3. AUGMENTIN [Concomitant]
     Route: 065
  4. ACETAMINOPHEN [Concomitant]

REACTIONS (5)
  - APALLIC SYNDROME [None]
  - BLOOD PRESSURE SYSTOLIC INCREASED [None]
  - CARDIAC MURMUR [None]
  - COMA [None]
  - VENTRICULAR TACHYCARDIA [None]
